FAERS Safety Report 18544450 (Version 1)
Quarter: 2020Q4

REPORT INFORMATION
  Report Type: Spontaneous
  Country: JP (occurrence: JP)
  Receive Date: 20201125
  Receipt Date: 20201125
  Transmission Date: 20210114
  Serious: Yes (Other)
  Sender: FDA-Public Use
  Company Number: JP-GLAXOSMITHKLINE-JP2020228070

PATIENT
  Sex: Female

DRUGS (1)
  1. FLUTIDE [FLUTICASONE PROPIONATE] [Suspect]
     Active Substance: FLUTICASONE PROPIONATE
     Indication: ASTHMA
     Dosage: UNK, BID
     Route: 055

REACTIONS (5)
  - Respiratory failure [Recovered/Resolved]
  - Dry throat [Recovered/Resolved]
  - Sick building syndrome [Recovered/Resolved]
  - Onychomadesis [Recovered/Resolved]
  - Dysphonia [Recovered/Resolved]
